FAERS Safety Report 7355440-8 (Version None)
Quarter: 2011Q1

REPORT INFORMATION
  Report Type: 
  Country: None (occurrence: None)
  Receive Date: 20110316
  Receipt Date: 20110307
  Transmission Date: 20110831
  Serious: Yes (Death)
  Sender: FDA-Public Use
  Company Number: JP-ELI_LILLY_AND_COMPANY-JP201012005979

PATIENT
  Age: 67 Year
  Sex: Female

DRUGS (3)
  1. GEMZAR [Suspect]
     Indication: MALIGNANT NEOPLASM OF RENAL PELVIS
     Dosage: 1400 MG, UNK
     Route: 042
     Dates: start: 20101213
  2. RANDA [Concomitant]
     Indication: MALIGNANT NEOPLASM OF RENAL PELVIS
     Dosage: 90 MG, UNK
     Route: 042
     Dates: start: 20101213
  3. EMEND [Concomitant]
     Route: 042

REACTIONS (1)
  - PANCREATITIS ACUTE [None]
